FAERS Safety Report 7350475-3 (Version None)
Quarter: 2011Q1

REPORT INFORMATION
  Report Type: 
  Country: None (occurrence: None)
  Receive Date: 20110314
  Receipt Date: 20110223
  Transmission Date: 20110831
  Serious: Yes (Other)
  Sender: FDA-Public Use
  Company Number: PHHY2010US36141

PATIENT
  Sex: Female
  Weight: 45.351 kg

DRUGS (2)
  1. EXTAVIA [Suspect]
     Dosage: 0.25 MG, QOD
     Route: 058
     Dates: start: 20100301
  2. EXTAVIA [Suspect]
     Indication: MULTIPLE SCLEROSIS
     Dosage: 025 MG, QOD
     Route: 058
     Dates: start: 20100520

REACTIONS (14)
  - OSTEOPOROSIS [None]
  - FEAR OF FALLING [None]
  - WEIGHT DECREASED [None]
  - FALL [None]
  - WRONG TECHNIQUE IN DRUG USAGE PROCESS [None]
  - HEADACHE [None]
  - MUSCULAR WEAKNESS [None]
  - GAIT DISTURBANCE [None]
  - URINARY INCONTINENCE [None]
  - PYREXIA [None]
  - HYPERHIDROSIS [None]
  - INJECTION SITE PAIN [None]
  - INJECTION SITE HAEMATOMA [None]
  - CHILLS [None]
